FAERS Safety Report 7703739-5 (Version None)
Quarter: 2011Q3

REPORT INFORMATION
  Report Type: 
  Country: None (occurrence: None)
  Receive Date: 20110823
  Receipt Date: 20110729
  Transmission Date: 20111222
  Serious: Yes (Other)
  Sender: FDA-Public Use
  Company Number: JP-AMGEN-KDC406727

PATIENT
  Age: 74 Year
  Sex: Female

DRUGS (3)
  1. DEXALTIN OINT [Concomitant]
     Dosage: UNK UNK, UNK
     Dates: start: 20090618, end: 20091115
  2. DENOSUMAB [Suspect]
     Indication: METASTASES TO BONE
     Dosage: 120 MG, Q4WK
     Route: 058
     Dates: start: 20090730
  3. NAVELBINE [Concomitant]
     Dosage: UNK UNK, UNK
     Dates: start: 20090518

REACTIONS (1)
  - OSTEONECROSIS OF JAW [None]
